FAERS Safety Report 13654352 (Version 1)
Quarter: 2017Q2

REPORT INFORMATION
  Report Type: Spontaneous
  Country: CN (occurrence: CN)
  Receive Date: 20170615
  Receipt Date: 20170615
  Transmission Date: 20170830
  Serious: Yes (Life-Threatening)
  Sender: FDA-Public Use
  Company Number: CN-ROCHE-1945832

PATIENT
  Age: 48 Year
  Sex: Female

DRUGS (1)
  1. ROCEPHIN [Suspect]
     Active Substance: CEFTRIAXONE SODIUM
     Indication: PYELONEPHRITIS ACUTE
     Route: 041
     Dates: start: 20170320, end: 20170320

REACTIONS (7)
  - Wheezing [Recovering/Resolving]
  - Loss of consciousness [Recovering/Resolving]
  - Dyspnoea [Recovering/Resolving]
  - Pulmonary oedema [Recovering/Resolving]
  - Oropharyngeal discomfort [Recovering/Resolving]
  - Blood pressure abnormal [Recovering/Resolving]
  - Chest discomfort [Recovering/Resolving]

NARRATIVE: CASE EVENT DATE: 20170320
